FAERS Safety Report 22299400 (Version 1)
Quarter: 2023Q2

REPORT INFORMATION
  Report Type: Spontaneous
  Country: US (occurrence: None)
  Receive Date: 20230508
  Receipt Date: 20230508
  Transmission Date: 20230721
  Serious: Yes (Other)
  Sender: FDA-Public Use
  Company Number: None

PATIENT
  Age: 38 Year
  Sex: Female
  Weight: 71.1 kg

DRUGS (2)
  1. OFLOXACIN [Suspect]
     Active Substance: OFLOXACIN
     Dates: end: 20230221
  2. ofloxacin ophthalmic drops [Concomitant]
     Dates: end: 20230221

REACTIONS (2)
  - Urticaria [None]
  - Recalled product administered [None]

NARRATIVE: CASE EVENT DATE: 20230221
